FAERS Safety Report 12670057 (Version 1)
Quarter: 2016Q3

REPORT INFORMATION
  Report Type: Spontaneous
  Country: DE (occurrence: DE)
  Receive Date: 20160821
  Receipt Date: 20160821
  Transmission Date: 20161109
  Serious: Yes (Other)
  Sender: FDA-Public Use
  Company Number: DE-AMGEN-DEUSP2016096236

PATIENT
  Sex: Female
  Weight: 70 kg

DRUGS (2)
  1. PROLIA [Suspect]
     Active Substance: DENOSUMAB
     Indication: PRODUCT USED FOR UNKNOWN INDICATION
     Dosage: UNK
     Route: 065
     Dates: start: 20150714, end: 20160301
  2. DEKRISTOL [Concomitant]
     Active Substance: CHOLECALCIFEROL
     Dosage: UNK UNK, Q2WK

REACTIONS (7)
  - Hyperhidrosis [Unknown]
  - Loose tooth [Not Recovered/Not Resolved]
  - Osteitis [Unknown]
  - Lenticular opacities [Unknown]
  - Alopecia [Unknown]
  - Bone pain [Unknown]
  - Tooth loss [Not Recovered/Not Resolved]
